FAERS Safety Report 24834366 (Version 1)
Quarter: 2025Q1

REPORT INFORMATION
  Report Type: Spontaneous
  Country: US (occurrence: US)
  Receive Date: 20250113
  Receipt Date: 20250113
  Transmission Date: 20250408
  Serious: Yes (Death)
  Sender: PERRIGO
  Company Number: US-PERRIGO-25US000508

PATIENT
  Age: 33 Year
  Sex: Female

DRUGS (5)
  1. ACETAMINOPHEN [Suspect]
     Active Substance: ACETAMINOPHEN
     Indication: Suspected suicide
     Route: 048
  2. UNSPECIFIED INGREDIENT [Suspect]
     Active Substance: UNSPECIFIED INGREDIENT
     Indication: Suspected suicide
     Route: 048
  3. CLONIDINE [Suspect]
     Active Substance: CLONIDINE
     Indication: Suspected suicide
     Route: 065
  4. ATOGEPANT [Suspect]
     Active Substance: ATOGEPANT
     Indication: Suspected suicide
     Route: 065
  5. ONDANSETRON [Suspect]
     Active Substance: ONDANSETRON
     Indication: Suspected suicide
     Route: 065

REACTIONS (2)
  - Exposure to toxic agent [Fatal]
  - Completed suicide [Fatal]

NARRATIVE: CASE EVENT DATE: 20230101
